FAERS Safety Report 5332396-0 (Version None)
Quarter: 2007Q2

REPORT INFORMATION
  Report Type: 
  Country: None (occurrence: None)
  Receive Date: 20070521
  Receipt Date: 20070521
  Transmission Date: 20071010
  Serious: Yes (Disabling)
  Sender: FDA-Public Use
  Company Number: None

PATIENT
  Age: 59 Year
  Sex: Male
  Weight: 107.9561 kg

DRUGS (1)
  1. CREST PRO-HEALTH RINSE PROCTOR + GAMBLE [Suspect]
     Indication: DENTAL CARE
     Dosage: 2X DAILY
     Dates: start: 20070506, end: 20070514

REACTIONS (2)
  - PHARMACEUTICAL PRODUCT COMPLAINT [None]
  - TOOTH DISCOLOURATION [None]
